FAERS Safety Report 26107511 (Version 1)
Quarter: 2025Q4

REPORT INFORMATION
  Report Type: Spontaneous
  Country: US (occurrence: None)
  Receive Date: 20251126
  Receipt Date: 20251126
  Transmission Date: 20260117
  Serious: Yes (Hospitalization)
  Sender: FDA-CTU
  Company Number: None

PATIENT
  Sex: Male

DRUGS (2)
  1. VYNDAMAX [Suspect]
     Active Substance: TAFAMIDIS
     Indication: Amyloidosis
     Dosage: FREQUENCY : DAILY;?
     Route: 048
     Dates: start: 20250506
  2. FUROSEMIDE [Suspect]
     Active Substance: FUROSEMIDE

REACTIONS (5)
  - Joint injury [None]
  - Fluid retention [None]
  - Intentional dose omission [None]
  - Dizziness postural [None]
  - Dizziness postural [None]
